FAERS Safety Report 19406881 (Version 8)
Quarter: 2024Q4

REPORT INFORMATION
  Report Type: Spontaneous
  Country: FR (occurrence: FR)
  Receive Date: 20210612
  Receipt Date: 20241025
  Transmission Date: 20250115
  Serious: Yes (Other)
  Sender: ROCHE
  Company Number: FR-ROCHE-2789805

PATIENT
  Age: 20 Year
  Sex: Female
  Weight: 47 kg

DRUGS (1)
  1. TOCILIZUMAB [Suspect]
     Active Substance: TOCILIZUMAB
     Indication: Neuromyelitis optica spectrum disorder
     Route: 042
     Dates: start: 202003

REACTIONS (3)
  - Off label use [Unknown]
  - Neutropenia [Not Recovered/Not Resolved]
  - Localised infection [Unknown]
